FAERS Safety Report 5441411-5 (Version None)
Quarter: 2007Q3

REPORT INFORMATION
  Report Type: 
  Country: None (occurrence: None)
  Receive Date: 20070828
  Receipt Date: 20070828
  Transmission Date: 20080115
  Serious: No
  Sender: FDA-Public Use
  Company Number: None

PATIENT
  Sex: Male
  Weight: 76.2043 kg

DRUGS (1)
  1. AMIODARONE HCL [Suspect]
     Indication: STENT PLACEMENT
     Dosage: ONE TABLET DAILY PO
     Route: 048
     Dates: start: 20050110, end: 20070825

REACTIONS (2)
  - BALANCE DISORDER [None]
  - GAIT DISTURBANCE [None]
